FAERS Safety Report 14241330 (Version 1)
Quarter: 2017Q4

REPORT INFORMATION
  Report Type: Spontaneous
  Country: US (occurrence: US)
  Receive Date: 20171130
  Receipt Date: 20171130
  Transmission Date: 20180321
  Serious: Yes (Other)
  Sender: FDA-Public Use
  Company Number: US-ROCHE-2027751

PATIENT
  Sex: Female

DRUGS (1)
  1. ERIVEDGE [Suspect]
     Active Substance: VISMODEGIB
     Indication: BASAL CELL CARCINOMA
     Route: 065
     Dates: start: 2017

REACTIONS (7)
  - Oral discomfort [Unknown]
  - Dysgeusia [Unknown]
  - Toxicity to various agents [Unknown]
  - Fatigue [Unknown]
  - Neoplasm malignant [Unknown]
  - Alopecia [Unknown]
  - Paraesthesia [Unknown]
